FAERS Safety Report 11214988 (Version 1)
Quarter: 2015Q2

REPORT INFORMATION
  Report Type: Spontaneous
  Country: US (occurrence: None)
  Receive Date: 20150622
  Receipt Date: 20150622
  Transmission Date: 20150821
  Serious: Yes (Life-Threatening, Hospitalization, Disabling)
  Sender: FDA-Public Use
  Company Number: None

PATIENT
  Age: 29 Year
  Sex: Male

DRUGS (5)
  1. WARFARIN [Concomitant]
     Active Substance: WARFARIN
  2. OXYCONDE [Concomitant]
  3. AMIODARONE HCL [Concomitant]
     Active Substance: AMIODARONE HYDROCHLORIDE
  4. COUMADIN [Suspect]
     Active Substance: WARFARIN SODIUM
     Indication: AORTIC VALVE REPLACEMENT
     Dosage: 2 PILLS ONCE DAILY
     Route: 048
     Dates: start: 20150608, end: 20150620
  5. COREG [Concomitant]
     Active Substance: CARVEDILOL

REACTIONS (7)
  - International normalised ratio decreased [None]
  - Adverse drug reaction [None]
  - Overdose [None]
  - Product counterfeit [None]
  - Product quality issue [None]
  - Chest pain [None]
  - Product substitution issue [None]

NARRATIVE: CASE EVENT DATE: 20150617
